FAERS Safety Report 13980422 (Version 1)
Quarter: 2017Q3

REPORT INFORMATION
  Report Type: Spontaneous
  Country: US (occurrence: US)
  Receive Date: 20170918
  Receipt Date: 20170918
  Transmission Date: 20171128
  Serious: Yes (Hospitalization, Other)
  Sender: FDA-Public Use
  Company Number: US-AUROBINDO-AUR-APL-2017-40299

PATIENT
  Age: 76 Year
  Sex: Male

DRUGS (2)
  1. PREDNISONE. [Suspect]
     Active Substance: PREDNISONE
     Indication: CHRONIC OBSTRUCTIVE PULMONARY DISEASE
     Dosage: 40 MG, UNK
     Route: 065
  2. FLUTICASONE W/SALMETEROL [Suspect]
     Active Substance: FLUTICASONE PROPIONATE\SALMETEROL XINAFOATE
     Indication: CHRONIC OBSTRUCTIVE PULMONARY DISEASE
     Dosage: 50 MCG/500 MCG
     Route: 065

REACTIONS (3)
  - Dyspnoea [Recovering/Resolving]
  - Bronchopulmonary aspergillosis [Recovering/Resolving]
  - Wheezing [Recovering/Resolving]
